FAERS Safety Report 18589226 (Version 1)
Quarter: 2020Q4

REPORT INFORMATION
  Report Type: Report from Study
  Country: US (occurrence: US)
  Receive Date: 20201208
  Receipt Date: 20201208
  Transmission Date: 20210114
  Serious: Yes (Death)
  Sender: FDA-Public Use
  Company Number: US-ROCHE-2720618

PATIENT
  Age: 61 Year
  Sex: Male

DRUGS (9)
  1. OXALIPLATIN. [Suspect]
     Active Substance: OXALIPLATIN
     Indication: GASTROOESOPHAGEAL CANCER
     Dosage: ON 05/NOV/2020 RECEIVED MOST RECENT DOSE (300 MG) IN CYCLE 2 OF OXALIPLATIN PRIOR TO SAE ONSET AND H
     Route: 042
     Dates: start: 20201015, end: 20201117
  2. LORAZEPAM. [Concomitant]
     Active Substance: LORAZEPAM
     Dates: start: 20201116, end: 20201117
  3. ONDANSETRON [Concomitant]
     Active Substance: ONDANSETRON
     Dates: start: 20200910
  4. OLANZAPINE. [Concomitant]
     Active Substance: OLANZAPINE
     Dates: start: 20201116, end: 20201117
  5. DKN-01. [Suspect]
     Active Substance: DKN-01
     Indication: GASTROOESOPHAGEAL CANCER
     Dosage: ON 05/NOV/2020 RECEIVED MOST RECENT DOSE (300 MG) IN CYCLE 2 DAY 1 OF DKN-01 PRIOR TO SAE ONSET AND
     Route: 042
     Dates: start: 20201015, end: 20201117
  6. COMPAZINE [Concomitant]
     Active Substance: PROCHLORPERAZINE MALEATE
     Dates: start: 20201105, end: 20201117
  7. ESOMEPRAZOLE. [Concomitant]
     Active Substance: ESOMEPRAZOLE MAGNESIUM
     Dates: start: 20201105, end: 20201117
  8. SUCRALFATE. [Concomitant]
     Active Substance: SUCRALFATE
     Dates: start: 20201029, end: 20201117
  9. CAPECITABINE. [Suspect]
     Active Substance: CAPECITABINE
     Indication: GASTROOESOPHAGEAL CANCER
     Dosage: ON 17/NOV/2020 RECEIVED MOST RECENT DOSE OF CAPACITABINE (2250 MG) IN CYCLE 2 PRIOR TO SAE ONSET AND
     Route: 048
     Dates: start: 20201015, end: 20201117

REACTIONS (1)
  - Cardiac arrest [Fatal]

NARRATIVE: CASE EVENT DATE: 20201117
